FAERS Safety Report 7865532-2 (Version None)
Quarter: 2011Q4

REPORT INFORMATION
  Report Type: 
  Country: None (occurrence: None)
  Receive Date: 20111028
  Receipt Date: 20110113
  Transmission Date: 20120403
  Serious: No
  Sender: FDA-Public Use
  Company Number: US-GLAXOSMITHKLINE-A0905871A

PATIENT
  Age: 14 Year
  Sex: Male

DRUGS (1)
  1. ADVAIR DISKUS 100/50 [Suspect]
     Indication: ASTHMA
     Route: 065
     Dates: start: 20080101, end: 20110101

REACTIONS (1)
  - FEELING OF BODY TEMPERATURE CHANGE [None]
